FAERS Safety Report 6975440-7 (Version None)
Quarter: 2010Q3

REPORT INFORMATION
  Report Type: 
  Country: None (occurrence: None)
  Receive Date: 20100910
  Receipt Date: 20100730
  Transmission Date: 20110219
  Serious: Yes (Hospitalization, Other)
  Sender: FDA-Public Use
  Company Number: US-BAYER-201030887NA

PATIENT
  Age: 29 Year
  Sex: Female
  Weight: 95 kg

DRUGS (14)
  1. YASMIN [Suspect]
     Indication: ORAL CONTRACEPTION
     Route: 048
     Dates: start: 20040101, end: 20090201
  2. OCELLA [Suspect]
     Indication: ORAL CONTRACEPTION
     Route: 048
     Dates: start: 20040101, end: 20090101
  3. YAZ [Suspect]
     Indication: ORAL CONTRACEPTION
     Route: 048
     Dates: start: 20040101, end: 20090101
  4. MOTRIN [Concomitant]
  5. ANTIBIOTICS [Concomitant]
  6. LORAZEPAM [Concomitant]
  7. ROXICET [Concomitant]
  8. CLONAZEPAM [Concomitant]
  9. IMITREX [Concomitant]
  10. SUMATRIPTAN [Concomitant]
  11. AMOXICILLIN [Concomitant]
  12. ZANTAC [Concomitant]
  13. TUMS [Concomitant]
  14. ALKA SELTZER [Concomitant]

REACTIONS (9)
  - ABDOMINAL PAIN UPPER [None]
  - ANAL FISSURE [None]
  - BACK PAIN [None]
  - BILIARY COLIC [None]
  - CHOLECYSTITIS CHRONIC [None]
  - CHOLELITHIASIS [None]
  - DYSPEPSIA [None]
  - GASTROOESOPHAGEAL REFLUX DISEASE [None]
  - RECTAL HAEMORRHAGE [None]
